FAERS Safety Report 15866694 (Version 1)
Quarter: 2019Q1

REPORT INFORMATION
  Report Type: Spontaneous
  Country: US (occurrence: US)
  Receive Date: 20190125
  Receipt Date: 20190125
  Transmission Date: 20190417
  Serious: No
  Sender: FDA-Public Use
  Company Number: US-DSJP-DSU-2018-109778

PATIENT

DRUGS (1)
  1. EVOXAC [Suspect]
     Active Substance: CEVIMELINE HYDROCHLORIDE
     Indication: DRY MOUTH
     Dosage: 30 MG, TID
     Route: 048

REACTIONS (3)
  - Off label use [Not Recovered/Not Resolved]
  - Dysphagia [Recovered/Resolved]
  - Product administration error [Recovered/Resolved]
